FAERS Safety Report 7405729-9 (Version None)
Quarter: 2011Q2

REPORT INFORMATION
  Report Type: 
  Country: None (occurrence: None)
  Receive Date: 20110411
  Receipt Date: 20110401
  Transmission Date: 20111010
  Serious: Yes (Other)
  Sender: FDA-Public Use
  Company Number: US-ROCHE-768840

PATIENT
  Sex: Male

DRUGS (2)
  1. SOTRET [Suspect]
     Indication: ACNE
     Route: 065
  2. ACCUTANE [Suspect]
     Indication: ACNE
     Route: 065

REACTIONS (6)
  - GASTROINTESTINAL DISORDER [None]
  - BLOOD TRIGLYCERIDES INCREASED [None]
  - DEPRESSION [None]
  - SUICIDAL IDEATION [None]
  - COLITIS ULCERATIVE [None]
  - BLOOD CHOLESTEROL INCREASED [None]
